FAERS Safety Report 15478800 (Version 4)
Quarter: 2020Q4

REPORT INFORMATION
  Report Type: Spontaneous
  Country: US (occurrence: US)
  Receive Date: 20181009
  Receipt Date: 20201007
  Transmission Date: 20210113
  Serious: Yes (Death, Hospitalization, Other)
  Sender: FDA-Public Use
  Company Number: US-JNJFOC-20181009799

PATIENT
  Age: 70 Year
  Sex: Male

DRUGS (1)
  1. XARELTO [Suspect]
     Active Substance: RIVAROXABAN
     Indication: THROMBOSIS
     Route: 048
     Dates: start: 20160925, end: 20161008

REACTIONS (4)
  - Internal haemorrhage [Unknown]
  - Coronary artery disease [Fatal]
  - Amyotrophic lateral sclerosis [Fatal]
  - Melaena [Unknown]

NARRATIVE: CASE EVENT DATE: 20161001
